FAERS Safety Report 17719552 (Version 2)
Quarter: 2020Q2

REPORT INFORMATION
  Report Type: Spontaneous
  Country: US (occurrence: US)
  Receive Date: 20200428
  Receipt Date: 20200522
  Transmission Date: 20200714
  Serious: Yes (Hospitalization, Other)
  Sender: FDA-Public Use
  Company Number: US-EMERGENT BIOSOLUTIONS CANADA INC.-20000306SP

PATIENT
  Sex: Male

DRUGS (10)
  1. MORPHINE SULFATE. [Suspect]
     Active Substance: MORPHINE SULFATE
     Indication: INJURY
  2. OXYCODONE HYDROCHLORIDE. [Suspect]
     Active Substance: OXYCODONE HYDROCHLORIDE
     Dosage: 15 MILLIGRAM, QD
     Route: 048
     Dates: start: 2010
  3. OXYCODONE HYDROCHLORIDE. [Suspect]
     Active Substance: OXYCODONE HYDROCHLORIDE
     Indication: PRODUCT USED FOR UNKNOWN INDICATION
     Dosage: UNK TABLET, QD
     Route: 048
  4. FENTANYL. [Suspect]
     Active Substance: FENTANYL
     Indication: INJURY
  5. OXYCODONE HYDROCHLORIDE. [Suspect]
     Active Substance: OXYCODONE HYDROCHLORIDE
     Indication: INJURY
     Dosage: 30 MILLIGRAM, QD
     Route: 048
     Dates: start: 2010
  6. SYMBICORT [Suspect]
     Active Substance: BUDESONIDE\FORMOTEROL FUMARATE DIHYDRATE
     Indication: PRODUCT USED FOR UNKNOWN INDICATION
     Dosage: UNK
     Route: 065
  7. NARCAN [Suspect]
     Active Substance: NALOXONE HYDROCHLORIDE
     Dosage: UNK
     Route: 065
  8. FENTANYL. [Suspect]
     Active Substance: FENTANYL
     Indication: PRODUCT USED FOR UNKNOWN INDICATION
     Dosage: 2000 UNK
     Route: 062
     Dates: start: 2000
  9. MORPHINE SULFATE. [Suspect]
     Active Substance: MORPHINE SULFATE
     Indication: PRODUCT USED FOR UNKNOWN INDICATION
     Dosage: 30 MILLIGRAM, QD
     Route: 048
     Dates: start: 2000, end: 2010
  10. METOPROLOL. [Suspect]
     Active Substance: METOPROLOL
     Indication: UNEVALUABLE THERAPY
     Dosage: UNK
     Route: 048

REACTIONS (12)
  - Dizziness [Unknown]
  - Balance disorder [Unknown]
  - Product prescribing issue [Unknown]
  - Arrhythmia [Unknown]
  - Dyspnoea [Unknown]
  - Memory impairment [Unknown]
  - Drug withdrawal syndrome [Unknown]
  - Cognitive disorder [Unknown]
  - Cardiac arrest [Unknown]
  - Lethargy [Unknown]
  - Drug dependence [Unknown]
  - Vertigo [Unknown]

NARRATIVE: CASE EVENT DATE: 2019
